FAERS Safety Report 24990481 (Version 6)
Quarter: 2025Q3

REPORT INFORMATION
  Report Type: Report from Study
  Country: CO (occurrence: CO)
  Receive Date: 20250220
  Receipt Date: 20250904
  Transmission Date: 20251021
  Serious: No
  Sender: ABBVIE
  Company Number: CO-ABBVIE-6142061

PATIENT
  Age: 82 Year
  Sex: Female
  Weight: 70 kg

DRUGS (2)
  1. RINVOQ [Suspect]
     Active Substance: UPADACITINIB
     Indication: Rheumatoid arthritis
     Dosage: RINVOQ VIAL BOTTLE 15MG
     Route: 048
     Dates: start: 20230623, end: 20250714
  2. RINVOQ [Suspect]
     Active Substance: UPADACITINIB
     Indication: Rheumatoid arthritis
     Route: 048

REACTIONS (5)
  - Back pain [Not Recovered/Not Resolved]
  - Compression fracture [Recovering/Resolving]
  - Nerve compression [Recovering/Resolving]
  - Proctalgia [Not Recovered/Not Resolved]
  - Mobility decreased [Unknown]
